FAERS Safety Report 6027127-5 (Version None)
Quarter: 2009Q1

REPORT INFORMATION
  Report Type: 
  Country: None (occurrence: None)
  Receive Date: 20090102
  Receipt Date: 20090102
  Transmission Date: 20090719
  Serious: Yes (Death)
  Sender: FDA-Public Use
  Company Number: None

PATIENT
  Sex: Male

DRUGS (1)
  1. CLOZARIL [Suspect]
     Indication: WRONG DRUG ADMINISTERED
     Dosage: PO
     Route: 048
     Dates: start: 20080620, end: 20080620

REACTIONS (12)
  - ANOXIA [None]
  - APALLIC SYNDROME [None]
  - ASPIRATION [None]
  - BRAIN INJURY [None]
  - CARDIAC ARREST [None]
  - CARDIAC FAILURE CONGESTIVE [None]
  - ENDOTRACHEAL INTUBATION COMPLICATION [None]
  - LOSS OF CONSCIOUSNESS [None]
  - NO THERAPEUTIC RESPONSE [None]
  - PNEUMONIA [None]
  - RESPIRATORY ARREST [None]
  - WRONG DRUG ADMINISTERED [None]
